FAERS Safety Report 14793958 (Version 1)
Quarter: 2018Q2

REPORT INFORMATION
  Report Type: Spontaneous
  Country: CN (occurrence: CN)
  Receive Date: 20180423
  Receipt Date: 20180423
  Transmission Date: 20180711
  Serious: Yes (Hospitalization, Other)
  Sender: FDA-Public Use
  Company Number: CN-GLAXOSMITHKLINE-CN2018GSK067827

PATIENT
  Age: 8 Year
  Sex: Female

DRUGS (1)
  1. LAMOTRIGINE. [Suspect]
     Active Substance: LAMOTRIGINE
     Indication: EPILEPSY
     Dosage: 5 MG, BID
     Route: 048

REACTIONS (19)
  - Erythema multiforme [Unknown]
  - Pigmentation disorder [Unknown]
  - Urticaria [Unknown]
  - Upper respiratory tract infection [Unknown]
  - Conjunctivitis [Unknown]
  - Liver injury [Unknown]
  - Rash [Unknown]
  - Oedema [Unknown]
  - Stevens-Johnson syndrome [Recovering/Resolving]
  - Pain [Unknown]
  - Haemorrhage [Unknown]
  - Abdominal distension [Unknown]
  - Mouth ulceration [Unknown]
  - Blood blister [Unknown]
  - Hypokalaemia [Unknown]
  - Rash erythematous [Unknown]
  - Pruritus [Unknown]
  - Pyrexia [Unknown]
  - Asthenia [Unknown]
